FAERS Safety Report 6080605-5 (Version None)
Quarter: 2009Q1

REPORT INFORMATION
  Report Type: 
  Country: None (occurrence: None)
  Receive Date: 20090217
  Receipt Date: 20090205
  Transmission Date: 20090719
  Serious: Yes (Hospitalization)
  Sender: FDA-Public Use
  Company Number: US-WYE-H08097009

PATIENT
  Age: 17 Year
  Sex: Female

DRUGS (5)
  1. IBUPROFEN [Suspect]
     Indication: DYSMENORRHOEA
     Dosage: UNKNOWN DOSE 3-4 DAYS PER MONTH
     Route: 048
  2. ALPRAZOLAM [Concomitant]
     Indication: ANXIETY
     Dosage: 0.5 MG TWICE DAILY AS NEEDED
     Route: 048
  3. ESCITALOPRAM [Suspect]
     Indication: MAJOR DEPRESSION
     Route: 048
  4. ESCITALOPRAM [Suspect]
     Route: 048
  5. ESCITALOPRAM [Suspect]
     Route: 048

REACTIONS (6)
  - ABDOMINAL PAIN [None]
  - ANAEMIA [None]
  - DIARRHOEA [None]
  - FAECES DISCOLOURED [None]
  - NEPHRITIS ALLERGIC [None]
  - RENAL FAILURE ACUTE [None]
